FAERS Safety Report 17499799 (Version 4)
Quarter: 2020Q2

REPORT INFORMATION
  Report Type: Report from Study
  Country: US (occurrence: US)
  Receive Date: 20200305
  Receipt Date: 20200521
  Transmission Date: 20200713
  Serious: Yes (Death, Other)
  Sender: FDA-Public Use
  Company Number: US-GLAXOSMITHKLINE-US-2018TSO00759

PATIENT
  Age: 76 Year
  Sex: Female
  Weight: 82 kg

DRUGS (4)
  1. NIRAPARIB [Suspect]
     Active Substance: NIRAPARIB
     Indication: OVARIAN CANCER
     Dosage: 200 MG, QD
     Dates: start: 20180201, end: 20180215
  2. NIRAPARIB [Suspect]
     Active Substance: NIRAPARIB
     Dosage: 300 MG, QD
     Dates: start: 20180216, end: 201802
  3. NIRAPARIB [Suspect]
     Active Substance: NIRAPARIB
     Dosage: 200 MG, QD
     Dates: start: 20190402
  4. NIRAPARIB [Suspect]
     Active Substance: NIRAPARIB
     Dosage: 200 MG, QD, PM WITHOUT FOOD
     Route: 048
     Dates: start: 20180221

REACTIONS (16)
  - Dysphagia [Unknown]
  - Nail growth abnormal [Not Recovered/Not Resolved]
  - Fatigue [Recovered/Resolved]
  - Radiotherapy to lymph nodes [Unknown]
  - Weight decreased [Unknown]
  - Decreased appetite [Recovering/Resolving]
  - Death [Fatal]
  - Nail disorder [Unknown]
  - Blood pressure increased [Unknown]
  - Constipation [Recovered/Resolved]
  - Intentional underdose [Recovered/Resolved]
  - Emotional distress [Unknown]
  - Dental restoration failure [Not Recovered/Not Resolved]
  - Product dose omission [Unknown]
  - Malignant neoplasm progression [Unknown]
  - Walking aid user [Unknown]

NARRATIVE: CASE EVENT DATE: 201802
